FAERS Safety Report 12609521 (Version 1)
Quarter: 2016Q3

REPORT INFORMATION
  Report Type: Spontaneous
  Country: US (occurrence: US)
  Receive Date: 20160801
  Receipt Date: 20160801
  Transmission Date: 20161109
  Serious: No
  Sender: FDA-Public Use
  Company Number: US-TEVA-576161USA

PATIENT
  Age: 50 Year
  Sex: Female

DRUGS (3)
  1. METHADONE [Concomitant]
     Active Substance: METHADONE HYDROCHLORIDE
     Dosage: 3 DOSAGE FORMS DAILY;
  2. BACLOFEN. [Suspect]
     Active Substance: BACLOFEN
     Indication: BACK PAIN
     Dosage: 3 DOSAGE FORMS DAILY;
  3. NUCYNTA [Concomitant]
     Active Substance: TAPENTADOL HYDROCHLORIDE
     Dosage: 400 MILLIGRAM DAILY;

REACTIONS (2)
  - Pain [Not Recovered/Not Resolved]
  - Fall [Not Recovered/Not Resolved]
